FAERS Safety Report 6279573-2 (Version None)
Quarter: 2009Q3

REPORT INFORMATION
  Report Type: 
  Country: None (occurrence: None)
  Receive Date: 20090723
  Receipt Date: 20090715
  Transmission Date: 20100115
  Serious: Yes (Other)
  Sender: FDA-Public Use
  Company Number: A0797097A

PATIENT
  Age: 82 Year
  Sex: Female

DRUGS (7)
  1. ADVAIR HFA [Suspect]
     Indication: CHRONIC OBSTRUCTIVE PULMONARY DISEASE
     Dosage: 1PUFF PER DAY
     Route: 055
     Dates: start: 20090601
  2. WARFARIN SODIUM [Concomitant]
  3. MULTI-VITAMINS [Concomitant]
  4. COZAAR [Concomitant]
  5. BONIVA [Concomitant]
  6. DUONEB [Concomitant]
  7. PROVENTIL-HFA [Concomitant]

REACTIONS (5)
  - DEFAECATION URGENCY [None]
  - DIARRHOEA [None]
  - FLATULENCE [None]
  - MUSCLE SPASMS [None]
  - RECTAL HAEMORRHAGE [None]
